FAERS Safety Report 24936046 (Version 2)
Quarter: 2025Q1

REPORT INFORMATION
  Report Type: Spontaneous
  Country: CA (occurrence: None)
  Receive Date: 20250206
  Receipt Date: 20250212
  Transmission Date: 20250409
  Serious: Yes (Other)
  Sender: ORION
  Company Number: CA-PFIZER INC-202500022254

PATIENT
  Age: 82 Year
  Sex: Female

DRUGS (2)
  1. METHOTREXATE [Suspect]
     Active Substance: METHOTREXATE
     Indication: Rheumatoid arthritis
     Dates: start: 2007
  2. RITUXAN [Concomitant]
     Active Substance: RITUXIMAB
     Dates: start: 20070718, end: 2023

REACTIONS (5)
  - Arrhythmia [Unknown]
  - Rheumatoid arthritis [Not Recovered/Not Resolved]
  - Anxiety [Unknown]
  - Labyrinthitis [Unknown]
  - Fall [Unknown]

NARRATIVE: CASE EVENT DATE: 20240901
